FAERS Safety Report 6083035-5 (Version None)
Quarter: 2009Q1

REPORT INFORMATION
  Report Type: 
  Country: None (occurrence: None)
  Receive Date: 20090218
  Receipt Date: 20090209
  Transmission Date: 20090719
  Serious: Yes (Death, Other)
  Sender: FDA-Public Use
  Company Number: US-ABBOTT-06P-163-0407464-00

PATIENT
  Sex: Male
  Weight: 95.34 kg

DRUGS (20)
  1. NIASPAN [Suspect]
     Indication: HIGH DENSITY LIPOPROTEIN DECREASED
     Route: 048
     Dates: start: 20060611, end: 20060611
  2. NIASPAN [Suspect]
     Indication: BLOOD CHOLESTEROL INCREASED
  3. TRICOR [Suspect]
     Indication: DYSLIPIDAEMIA
     Route: 048
     Dates: end: 20060611
  4. PIOGLITAZONE HCL [Suspect]
     Indication: DIABETES MELLITUS
     Route: 048
     Dates: end: 20060611
  5. WELLBUTRIN [Suspect]
     Indication: DEPRESSION
     Route: 048
     Dates: end: 20060611
  6. EFFEXOR [Suspect]
     Indication: DEPRESSION
     Route: 048
     Dates: end: 20060611
  7. LORAZEPAM [Suspect]
     Indication: ANXIETY
     Route: 048
     Dates: end: 20060611
  8. TRAZODONE HCL [Suspect]
     Indication: DEPRESSION
     Route: 048
     Dates: end: 20060611
  9. TENORMIN [Suspect]
     Indication: TACHYARRHYTHMIA
     Route: 048
     Dates: end: 20060611
  10. LANOXIN [Suspect]
     Indication: TACHYARRHYTHMIA
     Route: 048
     Dates: end: 20060611
  11. GLUCOPHAGE [Suspect]
     Indication: DIABETES MELLITUS
     Route: 048
     Dates: end: 20060611
  12. GLUCOTROL XL [Suspect]
     Indication: DIABETES MELLITUS
     Route: 048
     Dates: end: 20060611
  13. LANTUS [Suspect]
     Indication: DIABETES MELLITUS
     Route: 058
     Dates: start: 20060609, end: 20060611
  14. LIPITOR [Suspect]
     Indication: BLOOD CHOLESTEROL
     Route: 048
  15. MULTI-VITAMINS [Suspect]
     Indication: DRUG USE FOR UNKNOWN INDICATION
     Route: 048
     Dates: end: 20060611
  16. RISPERDAL [Suspect]
     Indication: INSOMNIA
     Route: 048
  17. CENTRUM SILVER [Concomitant]
     Indication: DRUG USE FOR UNKNOWN INDICATION
  18. B1 [Concomitant]
     Indication: DRUG USE FOR UNKNOWN INDICATION
  19. PYRIDOXINE HCL [Concomitant]
     Indication: DRUG USE FOR UNKNOWN INDICATION
  20. VITAMIN B-12 [Concomitant]
     Indication: DRUG USE FOR UNKNOWN INDICATION

REACTIONS (5)
  - CARDIO-RESPIRATORY ARREST [None]
  - DRUG INTERACTION [None]
  - FLUSHING [None]
  - MEDICATION ERROR [None]
  - MYOCARDIAL INFARCTION [None]
